FAERS Safety Report 8505162-2 (Version None)
Quarter: 2012Q3

REPORT INFORMATION
  Report Type: 
  Country: None (occurrence: None)
  Receive Date: 20120712
  Receipt Date: 20120703
  Transmission Date: 20120928
  Serious: Yes (Life-Threatening, Hospitalization, Other)
  Sender: FDA-Public Use
  Company Number: US-SANOFI-AVENTIS-2012SA034270

PATIENT
  Age: 63 Year
  Sex: Male
  Weight: 119.75 kg

DRUGS (14)
  1. CLOPIDOGREL [Suspect]
     Route: 048
     Dates: start: 20120328, end: 20120328
  2. LOVENOX [Concomitant]
     Route: 058
     Dates: start: 20120326, end: 20120326
  3. MAGNESIUM SULFATE [Concomitant]
     Dates: start: 20120331
  4. CLOPIDOGREL [Suspect]
     Indication: ACUTE CORONARY SYNDROME
     Route: 048
     Dates: start: 20120327, end: 20120328
  5. ALLOPURINOL [Concomitant]
     Dates: start: 20120327, end: 20120328
  6. BLINDED THERAPY [Suspect]
     Indication: ACUTE CORONARY SYNDROME
     Route: 042
     Dates: start: 20120327, end: 20120328
  7. CLONIDINE [Concomitant]
     Dates: start: 20120327, end: 20120328
  8. ENOXAPARIN [Concomitant]
     Route: 058
     Dates: start: 20120326, end: 20120326
  9. AMLODIPINE [Concomitant]
     Dates: start: 20120327, end: 20120328
  10. ASPIRIN [Suspect]
     Indication: ACUTE CORONARY SYNDROME
     Route: 048
     Dates: start: 20120327, end: 20120328
  11. CODEINE/GUAIFENESIN [Concomitant]
     Dates: start: 20120327, end: 20120329
  12. CALCIUM CHLORIDE ANHYDROUS [Concomitant]
     Dates: start: 20120331
  13. ENOXAPARIN [Concomitant]
     Route: 058
     Dates: start: 20120327, end: 20120327
  14. DEXMEDETOMODINE HYDROCHLORIDE [Concomitant]
     Dates: start: 20120329, end: 20120331

REACTIONS (3)
  - VESSEL PUNCTURE SITE HAEMATOMA [None]
  - RETROPERITONEAL HAEMATOMA [None]
  - SEPTIC SHOCK [None]
